FAERS Safety Report 9031500 (Version 1)
Quarter: 2013Q1

REPORT INFORMATION
  Report Type: Report from Study
  Country: US (occurrence: US)
  Receive Date: 20130124
  Receipt Date: 20130124
  Transmission Date: 20140127
  Serious: No
  Sender: FDA-Public Use
  Company Number: US-VERTEX PHARMACEUTICALS INC.-2013-001047

PATIENT
  Sex: Male

DRUGS (10)
  1. VX-950 (TELAPREVIR) [Suspect]
     Indication: HEPATITIS C
     Dosage: 750 MG, TID
     Route: 048
  2. PEGASYS [Suspect]
     Indication: HEPATITIS C
     Dosage: 180 MCG/M
  3. RIBAPAK [Suspect]
     Indication: HEPATITIS C
     Dosage: 1200 MG, QD
  4. CENTRUM SILVER                     /02363801/ [Concomitant]
  5. VITAMIN D3 [Concomitant]
     Dosage: 2000 UT, UNK
  6. CO Q10 [Concomitant]
     Dosage: 100 MG, UNK
  7. MAGNESIUM [Concomitant]
     Dosage: 300 MG, UNK
  8. ANTARA [Concomitant]
     Dosage: 130 MG, UNK
  9. AZOR                               /00595201/ [Concomitant]
     Dosage: 10-20MG
  10. FISH OIL [Concomitant]

REACTIONS (1)
  - Anaemia [Unknown]
